FAERS Safety Report 17049253 (Version 1)
Quarter: 2019Q4

REPORT INFORMATION
  Report Type: Spontaneous
  Country: GB (occurrence: GB)
  Receive Date: 20191119
  Receipt Date: 20191119
  Transmission Date: 20200122
  Serious: Yes (Hospitalization, Other)
  Sender: FDA-Public Use
  Company Number: GB-MYLANLABS-2019M1110457

PATIENT
  Age: 78 Year
  Sex: Female

DRUGS (1)
  1. ZOLEDRONIC ACID [Suspect]
     Active Substance: ZOLEDRONIC ACID
     Indication: OSTEITIS DEFORMANS
     Dosage: 5 MILLIGRAM
     Route: 042

REACTIONS (5)
  - Vomiting [Recovering/Resolving]
  - Iritis [Recovering/Resolving]
  - Cataract nuclear [Recovered/Resolved]
  - Nausea [Recovering/Resolving]
  - Conjunctival haemorrhage [Recovering/Resolving]
